FAERS Safety Report 16693664 (Version 1)
Quarter: 2019Q3

REPORT INFORMATION
  Report Type: Spontaneous
  Country: IT (occurrence: IT)
  Receive Date: 20190812
  Receipt Date: 20190812
  Transmission Date: 20191004
  Serious: Yes (Death, Other)
  Sender: FDA-Public Use
  Company Number: IT-EX USA HOLDINGS-EXHL20192336

PATIENT
  Age: 48 Year
  Sex: Male

DRUGS (2)
  1. LANSOPRAZOLE. [Suspect]
     Active Substance: LANSOPRAZOLE
     Indication: PRODUCT USED FOR UNKNOWN INDICATION
     Dosage: UNKNOWN
     Route: 065
  2. WARFARIN [Interacting]
     Active Substance: WARFARIN
     Indication: ISCHAEMIC CARDIOMYOPATHY
     Dosage: UNKNOWN
     Route: 048

REACTIONS (5)
  - Thrombocytopenia [Fatal]
  - Renal failure [Fatal]
  - Labelled drug-drug interaction medication error [Fatal]
  - Epistaxis [Fatal]
  - Rhabdomyolysis [Fatal]
